FAERS Safety Report 24543920 (Version 1)
Quarter: 2024Q4

REPORT INFORMATION
  Report Type: Spontaneous
  Country: US (occurrence: US)
  Receive Date: 20241024
  Receipt Date: 20241024
  Transmission Date: 20250114
  Serious: Yes (Other)
  Sender: CATALYST PHARMA
  Company Number: US-CATALYSTPHARMACEUTICALPARTNERS-US-CATA-24-01186

PATIENT
  Sex: Female

DRUGS (4)
  1. FYCOMPA [Suspect]
     Active Substance: PERAMPANEL
     Indication: Product used for unknown indication
     Dosage: UNKNOWN
     Route: 048
     Dates: start: 2024, end: 2024
  2. FYCOMPA [Suspect]
     Active Substance: PERAMPANEL
     Dosage: UNKNOWN
     Route: 048
     Dates: start: 2024, end: 202409
  3. KEPPRA [Interacting]
     Active Substance: LEVETIRACETAM
     Indication: Seizure
     Dosage: HIGHEST DOSAGE
     Route: 065
     Dates: end: 2024
  4. KEPPRA [Interacting]
     Active Substance: LEVETIRACETAM
     Dosage: 3000 MG
     Route: 065
     Dates: start: 2024

REACTIONS (2)
  - Seizure [Unknown]
  - Therapy interrupted [Unknown]

NARRATIVE: CASE EVENT DATE: 20240101
